FAERS Safety Report 20186575 (Version 2)
Quarter: 2022Q1

REPORT INFORMATION
  Report Type: Spontaneous
  Country: US (occurrence: US)
  Receive Date: 20211215
  Receipt Date: 20220124
  Transmission Date: 20220424
  Serious: Yes (Hospitalization)
  Sender: FDA-Public Use
  Company Number: US-Accord-247158

PATIENT
  Age: 49 Year
  Sex: Female
  Weight: 99.79 kg

DRUGS (1)
  1. DOCETAXEL [Suspect]
     Active Substance: DOCETAXEL
     Indication: Breast cancer
     Dosage: STRENGTH: 1MG
     Route: 042
     Dates: start: 20181108, end: 20181108

REACTIONS (2)
  - Dacryostenosis acquired [Recovered/Resolved]
  - Dry eye [Unknown]
